FAERS Safety Report 13581928 (Version 1)
Quarter: 2017Q2

REPORT INFORMATION
  Report Type: Spontaneous
  Country: US (occurrence: US)
  Receive Date: 20170525
  Receipt Date: 20170525
  Transmission Date: 20170830
  Serious: Yes (Hospitalization, Other)
  Sender: FDA-Public Use
  Company Number: US-PFIZER INC-2017227493

PATIENT
  Age: 46 Year
  Sex: Female
  Weight: 63.5 kg

DRUGS (7)
  1. ZEMPLAR [Concomitant]
     Active Substance: PARICALCITOL
     Dosage: UNK
  2. PLAVIX [Concomitant]
     Active Substance: CLOPIDOGREL BISULFATE
     Dosage: UNK
  3. AMLODIPINE [Concomitant]
     Active Substance: AMLODIPINE BESYLATE
     Dosage: UNK
  4. REGRANEX [Suspect]
     Active Substance: BECAPLERMIN
     Dosage: 1X/DAY (ON FOR 24 HOURS)
     Route: 061
     Dates: start: 20170503, end: 20170504
  5. SILVADENE [Suspect]
     Active Substance: SILVER SULFADIAZINE
     Indication: DIABETIC ULCER
     Dosage: AS NEEDED
     Route: 061
  6. REGRANEX [Suspect]
     Active Substance: BECAPLERMIN
     Dosage: 1X/DAY (12 HOURS ON AND 12 HOURS OFF)
     Route: 061
     Dates: start: 20170504
  7. REGRANEX [Suspect]
     Active Substance: BECAPLERMIN
     Indication: DIABETIC ULCER
     Dosage: 1X/DAY (AS DIRECTED 12 HOURS ON AND 12 HOURS OFF)
     Route: 061
     Dates: start: 20170407, end: 20170503

REACTIONS (2)
  - Peripheral vascular disorder [Unknown]
  - Peripheral artery occlusion [Unknown]

NARRATIVE: CASE EVENT DATE: 20170503
